FAERS Safety Report 13624068 (Version 8)
Quarter: 2020Q4

REPORT INFORMATION
  Report Type: Report from Study
  Country: RU (occurrence: RU)
  Receive Date: 20170607
  Receipt Date: 20201118
  Transmission Date: 20210113
  Serious: Yes (Death)
  Sender: FDA-Public Use
  Company Number: RU-ROCHE-1884697

PATIENT
  Age: 61 Year
  Sex: Female
  Weight: 97 kg

DRUGS (12)
  1. ATEZOLIZUMAB. [Suspect]
     Active Substance: ATEZOLIZUMAB
     Indication: RENAL CELL CARCINOMA
     Dosage: STANDARD DOSING PER PROTOCOL?MOST RECENT DOSE PRIOR TO AE ONSET: 17/JAN/2017,  1200 MG?MOST RECENT D
     Route: 042
     Dates: start: 20160913
  2. PLAVIX [Concomitant]
     Active Substance: CLOPIDOGREL BISULFATE
     Indication: MYOCARDIAL INFARCTION
  3. GALVUS MET [Concomitant]
     Active Substance: METFORMIN HYDROCHLORIDE\VILDAGLIPTIN
     Indication: TYPE 2 DIABETES MELLITUS
     Route: 048
     Dates: start: 2010
  4. EUTHYROX [Concomitant]
     Active Substance: LEVOTHYROXINE SODIUM
     Indication: HYPERTHYROIDISM
     Dates: start: 2010, end: 20170413
  5. TRIDERM (RUSSIA) [Concomitant]
     Indication: DERMATITIS
     Dosage: 1 OTHER
     Route: 061
     Dates: start: 20170417, end: 20170421
  6. PLAVIX [Concomitant]
     Active Substance: CLOPIDOGREL BISULFATE
     Indication: CORONARY ARTERY DISEASE
     Route: 048
     Dates: start: 20160715
  7. BEVACIZUMAB. [Suspect]
     Active Substance: BEVACIZUMAB
     Indication: RENAL CELL CARCINOMA
     Dosage: STANDARD DOSING PER PROTOCOL?MOST RECENT DOSE PRIOR TO AE ONSET: 17/JAN/2017, 1650 MG?MOST RECENT DO
     Route: 042
     Dates: start: 20160913
  8. LOZAP [Concomitant]
     Indication: HYPERTENSION
     Route: 048
     Dates: start: 2005
  9. AUGMENTIN [Concomitant]
     Active Substance: AMOXICILLIN\CLAVULANATE POTASSIUM
     Indication: DERMATITIS
     Route: 048
     Dates: start: 20170417, end: 20170421
  10. NISE [Concomitant]
     Active Substance: NIMESULIDE
     Indication: BACK PAIN
     Dosage: BACK PAIN WITH IRRADIATION IN THE RIGHT LEG
     Route: 048
     Dates: start: 20170310
  11. NEBILET [Concomitant]
     Active Substance: NEBIVOLOL
     Indication: HYPERTENSION
     Route: 048
     Dates: start: 2005
  12. BANEOCIN [Concomitant]
     Indication: DERMATITIS
     Dosage: 1 OTHER
     Route: 061
     Dates: start: 20170417, end: 20170421

REACTIONS (3)
  - Hypothyroidism [Recovered/Resolved]
  - Hypothyroidism [Not Recovered/Not Resolved]
  - Adrenal insufficiency [Fatal]

NARRATIVE: CASE EVENT DATE: 20170117
